FAERS Safety Report 20861060 (Version 1)
Quarter: 2022Q2

REPORT INFORMATION
  Report Type: Spontaneous
  Country: RU (occurrence: RU)
  Receive Date: 20220523
  Receipt Date: 20220523
  Transmission Date: 20220720
  Serious: Yes (Other)
  Sender: FDA-Public Use
  Company Number: RU-Merck Healthcare KGaA-9322686

PATIENT
  Sex: Male

DRUGS (8)
  1. ERBITUX [Suspect]
     Active Substance: CETUXIMAB
     Indication: Colorectal cancer metastatic
     Dosage: UNK UNK, WEEKLY (1/W)
     Route: 065
     Dates: start: 20181213
  2. ERBITUX [Suspect]
     Active Substance: CETUXIMAB
     Dosage: UNK UNK, UNKNOWN (8-10 COURSES)
     Route: 065
     Dates: start: 20201012
  3. ERBITUX [Suspect]
     Active Substance: CETUXIMAB
     Dosage: UNK UNK, UNKNOWN
     Route: 065
     Dates: start: 20210208
  4. ERBITUX [Suspect]
     Active Substance: CETUXIMAB
     Dosage: UNK UNK, UNKNOWN (4TH COURSE)
     Route: 065
     Dates: start: 20210609
  5. ERBITUX [Suspect]
     Active Substance: CETUXIMAB
     Dosage: UNK UNK, UNKNOWN (DOSE REDUCTION)
     Route: 065
     Dates: start: 20211004
  6. IRINOTECAN [Concomitant]
     Active Substance: IRINOTECAN
     Indication: Colorectal cancer metastatic
     Dosage: UNK UNK, OTHER (ONCE IN 2 WEEKS)
     Dates: start: 20181213
  7. IRINOTECAN [Concomitant]
     Active Substance: IRINOTECAN
     Dosage: UNK UNK, UNKNOWN (8-10 COURSES)
     Dates: start: 20201012
  8. IRINOTECAN [Concomitant]
     Active Substance: IRINOTECAN
     Dosage: UNK
     Dates: start: 20210208

REACTIONS (3)
  - Intestinal obstruction [Recovered/Resolved]
  - Neutropenia [Unknown]
  - Anaemia [Unknown]
